FAERS Safety Report 7360446-9 (Version None)
Quarter: 2011Q1

REPORT INFORMATION
  Report Type: 
  Country: None (occurrence: None)
  Receive Date: 20110310
  Receipt Date: 20110228
  Transmission Date: 20110831
  Serious: Yes (Death)
  Sender: FDA-Public Use
  Company Number: 021537

PATIENT
  Sex: Female
  Weight: 60 kg

DRUGS (6)
  1. VERAPAMIL [Concomitant]
  2. LYRICA [Concomitant]
  3. LEVOTHYROXINE SODIUM [Concomitant]
  4. NEUPRO [Suspect]
     Dosage: 1 MG 1X24 HOURS
     Dates: start: 20101027
  5. FURORESE [Concomitant]
  6. ASPIRIN [Concomitant]

REACTIONS (4)
  - HYPOKALAEMIA [None]
  - DIABETES MELLITUS INADEQUATE CONTROL [None]
  - PNEUMONIA [None]
  - ILEUS [None]
